FAERS Safety Report 13194573 (Version 1)
Quarter: 2017Q1

REPORT INFORMATION
  Report Type: Spontaneous
  Country: FR (occurrence: FR)
  Receive Date: 20170207
  Receipt Date: 20170207
  Transmission Date: 20170428
  Serious: Yes (Other)
  Sender: FDA-Public Use
  Company Number: FR-MERCK KGAA-1062854

PATIENT
  Age: 79 Year
  Sex: Female

DRUGS (17)
  1. BISOPROLOL FUMARATE. [Suspect]
     Active Substance: BISOPROLOL FUMARATE
     Route: 048
     Dates: start: 20141212, end: 20161217
  2. ELIQUIS [Suspect]
     Active Substance: APIXABAN
     Route: 048
     Dates: start: 20160106, end: 20161017
  3. DIAMICRON [Suspect]
     Active Substance: GLICLAZIDE
     Route: 048
     Dates: start: 20150409, end: 20161017
  4. NOVOTHYROX [Suspect]
     Active Substance: LEVOTHYROXINE SODIUM
     Indication: THYROIDECTOMY
     Route: 048
     Dates: start: 2012, end: 20161017
  5. VOLTARENE [Suspect]
     Active Substance: DICLOFENAC SODIUM
     Route: 061
     Dates: end: 20161017
  6. TRAMADOL. [Concomitant]
     Active Substance: TRAMADOL
  7. AMIODARONE [Concomitant]
     Active Substance: AMIODARONE
  8. PARACETAMOL [Concomitant]
     Active Substance: ACETAMINOPHEN
  9. DICLOFENAC [Concomitant]
     Active Substance: DICLOFENAC
  10. VALSARTAN. [Concomitant]
     Active Substance: VALSARTAN
  11. ELIQUIS [Suspect]
     Active Substance: APIXABAN
     Route: 048
     Dates: start: 20161017
  12. BISOPROLOL FUMARATE. [Suspect]
     Active Substance: BISOPROLOL FUMARATE
     Route: 048
     Dates: start: 20161017
  13. ADENURIC [Suspect]
     Active Substance: FEBUXOSTAT
     Route: 048
     Dates: start: 20130614, end: 20161017
  14. FUROSEMIDE. [Concomitant]
     Active Substance: FUROSEMIDE
  15. DIAMICRON [Suspect]
     Active Substance: GLICLAZIDE
     Route: 048
     Dates: start: 20161017
  16. NOVOTHYROX [Suspect]
     Active Substance: LEVOTHYROXINE SODIUM
     Route: 048
     Dates: start: 20161017
  17. ESIDREX [Suspect]
     Active Substance: HYDROCHLOROTHIAZIDE
     Route: 048
     Dates: start: 19940201, end: 20161017

REACTIONS (1)
  - Renal failure [Recovered/Resolved]

NARRATIVE: CASE EVENT DATE: 20160530
